FAERS Safety Report 16954128 (Version 1)
Quarter: 2019Q4

REPORT INFORMATION
  Report Type: Spontaneous
  Country: US (occurrence: US)
  Receive Date: 20191023
  Receipt Date: 20191023
  Transmission Date: 20200122
  Serious: No
  Sender: FDA-Public Use
  Company Number: US-009507513-1910USA010942

PATIENT

DRUGS (1)
  1. BELSOMRA [Suspect]
     Active Substance: SUVOREXANT
     Dosage: 20 MILLIGRAM, ONCE DAILY
     Route: 048
     Dates: start: 201712

REACTIONS (3)
  - Product dose omission [Unknown]
  - No adverse event [Unknown]
  - Product availability issue [Unknown]
